FAERS Safety Report 21099947 (Version 1)
Quarter: 2022Q3

REPORT INFORMATION
  Report Type: Spontaneous
  Country: US (occurrence: US)
  Receive Date: 20220719
  Receipt Date: 20220719
  Transmission Date: 20221026
  Serious: Yes (Hospitalization)
  Sender: FDA-Public Use
  Company Number: US-GLENMARK PHARMACEUTICALS-2022GMK073600

PATIENT
  Age: 38 Year
  Sex: Female

DRUGS (10)
  1. LINEZOLID [Suspect]
     Active Substance: LINEZOLID
     Indication: Enterococcal infection
     Dosage: UNK
     Route: 048
  2. AMPICILLIN [Concomitant]
     Active Substance: AMPICILLIN
     Indication: Enterococcal infection
     Dosage: UNK
     Route: 065
  3. DAPTOMYCIN [Concomitant]
     Active Substance: DAPTOMYCIN
     Indication: Enterococcal infection
     Dosage: 8 MICROGRAM PER MILLIGRAM
     Route: 065
  4. DAPTOMYCIN [Concomitant]
     Active Substance: DAPTOMYCIN
     Dosage: 6 MILLIGRAM PER KILOGRAM, QD
     Route: 042
  5. DAPTOMYCIN [Concomitant]
     Active Substance: DAPTOMYCIN
     Dosage: 10 MILLIGRAM PER KILOGRAM EVERY 48 HOURS
     Route: 042
  6. DAPTOMYCIN [Concomitant]
     Active Substance: DAPTOMYCIN
     Dosage: 7 MILLIGRAM PER KILOGRAM EVERY 48 HOURS
     Route: 042
  7. GENTAMICIN [Concomitant]
     Active Substance: GENTAMICIN
     Indication: Enterococcal infection
     Dosage: UNK
     Route: 065
  8. GENTAMICIN [Concomitant]
     Active Substance: GENTAMICIN
     Dosage: 1 MILLIGRAM PER KILOGRAM EVERY 8 HOUR
     Route: 042
  9. CHLORAMPHENICOL [Concomitant]
     Active Substance: CHLORAMPHENICOL
     Indication: Enterococcal infection
     Dosage: 12.5 MILLIGRAM PER KILOGRAM EVERY 6 HOURS
     Route: 042
  10. DOXYCYCLINE [Concomitant]
     Active Substance: DOXYCYCLINE
     Indication: Enterococcal infection
     Dosage: UNK
     Route: 065

REACTIONS (1)
  - Drug resistance [Unknown]
